FAERS Safety Report 11877714 (Version 1)
Quarter: 2015Q4

REPORT INFORMATION
  Report Type: Report from Study
  Country: ID (occurrence: ID)
  Receive Date: 20151230
  Receipt Date: 20151230
  Transmission Date: 20160305
  Serious: Yes (Other)
  Sender: FDA-Public Use
  Company Number: ID-ROCHE-1683340

PATIENT
  Age: 44 Year
  Sex: Female

DRUGS (3)
  1. BONDRONAT [Suspect]
     Active Substance: IBANDRONIC ACID
     Indication: BREAST CANCER
     Route: 065
  2. BONDRONAT [Suspect]
     Active Substance: IBANDRONIC ACID
     Route: 065
  3. HERCEPTIN [Suspect]
     Active Substance: TRASTUZUMAB
     Indication: BREAST CANCER
     Route: 065
     Dates: start: 20131007

REACTIONS (8)
  - Musculoskeletal stiffness [Unknown]
  - Walking disability [Unknown]
  - Skin hypertrophy [Unknown]
  - Spinal disorder [Unknown]
  - Paralysis [Unknown]
  - Metastases to spine [Unknown]
  - Dyspnoea [Unknown]
  - Hypoaesthesia [Unknown]
